FAERS Safety Report 23259138 (Version 1)
Quarter: 2023Q4

REPORT INFORMATION
  Report Type: Spontaneous
  Country: PL (occurrence: PL)
  Receive Date: 20231204
  Receipt Date: 20231204
  Transmission Date: 20240109
  Serious: Yes (Other)
  Sender: FDA-Public Use
  Company Number: PL-002147023-NVSC2023PL252822

PATIENT
  Age: 51 Year
  Sex: Male

DRUGS (2)
  1. ASCIMINIB [Suspect]
     Active Substance: ASCIMINIB
     Indication: Philadelphia positive chronic myeloid leukaemia
     Dosage: 40 MG (2X20 MG)
     Route: 065
     Dates: start: 20230720
  2. IMATINIB [Concomitant]
     Active Substance: IMATINIB
     Indication: Philadelphia positive chronic myeloid leukaemia
     Dosage: UNK
     Route: 065
     Dates: start: 20061019

REACTIONS (1)
  - Respiratory failure [Unknown]

NARRATIVE: CASE EVENT DATE: 20231001
